FAERS Safety Report 7151305-5 (Version None)
Quarter: 2010Q4

REPORT INFORMATION
  Report Type: 
  Country: None (occurrence: None)
  Receive Date: 20101210
  Receipt Date: 20101126
  Transmission Date: 20110411
  Serious: Yes (Hospitalization)
  Sender: FDA-Public Use
  Company Number: GB-PFIZER INC-GB-WYE-H14619610

PATIENT
  Age: 76 Year
  Sex: Female

DRUGS (7)
  1. AMIODARONE HCL [Suspect]
     Indication: SUPRAVENTRICULAR TACHYCARDIA
     Dosage: 200 MG, 1X/DAY
     Route: 048
     Dates: start: 20090301, end: 20100225
  2. AZITHROMYCIN [Interacting]
     Dosage: 500 MG, 3X/WK
     Route: 048
     Dates: start: 20100222, end: 20100225
  3. ACETYLSALICYLIC ACID [Concomitant]
  4. BENDROFLUAZIDE [Concomitant]
  5. CARBOCISTEINE [Concomitant]
     Dosage: UNK
     Route: 065
     Dates: start: 20100201
  6. FLUOXETINE [Concomitant]
  7. ISOSORBIDE [Concomitant]

REACTIONS (6)
  - ACUTE CORONARY SYNDROME [None]
  - BLOOD MAGNESIUM DECREASED [None]
  - BRADYCARDIA [None]
  - CARDIOTOXICITY [None]
  - DRUG INTERACTION [None]
  - ELECTROCARDIOGRAM QT PROLONGED [None]
